FAERS Safety Report 20320538 (Version 3)
Quarter: 2022Q1

REPORT INFORMATION
  Report Type: Spontaneous
  Country: US (occurrence: US)
  Receive Date: 20220111
  Receipt Date: 20220208
  Transmission Date: 20220424
  Serious: No
  Sender: FDA-Public Use
  Company Number: US-ORGANON-O2201USA000382

PATIENT
  Age: 72 Year
  Sex: Male

DRUGS (4)
  1. ASMANEX [Suspect]
     Active Substance: MOMETASONE FUROATE
     Indication: Asthma
     Dosage: 2 PUFFS TWICE A DAY (120 DOSE), REPORTED AS DEVICE 1
     Dates: start: 20211214
  2. ASMANEX [Suspect]
     Active Substance: MOMETASONE FUROATE
     Indication: Asthma
     Dosage: 2 PUFFS TWICE A DAY (120 DOSE), REPORTED AS DEVICE 2
     Dates: start: 20211102
  3. ASMANEX [Suspect]
     Active Substance: MOMETASONE FUROATE
     Dosage: UNK
  4. OMEPRAZOLE [Concomitant]
     Active Substance: OMEPRAZOLE
     Dosage: UNK

REACTIONS (9)
  - Asthma [Recovered/Resolved]
  - Device malfunction [Unknown]
  - Poor quality device used [Unknown]
  - Incorrect dose administered [Unknown]
  - Device malfunction [Unknown]
  - Poor quality device used [Unknown]
  - Incorrect dose administered [Unknown]
  - Device malfunction [Unknown]
  - Poor quality device used [Unknown]

NARRATIVE: CASE EVENT DATE: 20211101
